FAERS Safety Report 13463730 (Version 1)
Quarter: 2017Q2

REPORT INFORMATION
  Report Type: Spontaneous
  Country: US (occurrence: US)
  Receive Date: 20170420
  Receipt Date: 20170420
  Transmission Date: 20170830
  Serious: Yes (Other)
  Sender: FDA-Public Use
  Company Number: US-LUNDBECK-DKLU2029420

PATIENT
  Sex: Female

DRUGS (6)
  1. SABRIL [Suspect]
     Active Substance: VIGABATRIN
     Indication: FOCAL DYSCOGNITIVE SEIZURES
     Route: 048
  2. VIMPAT [Concomitant]
     Active Substance: LACOSAMIDE
     Indication: PRODUCT USED FOR UNKNOWN INDICATION
     Route: 065
  3. SABRIL [Suspect]
     Active Substance: VIGABATRIN
     Indication: EPILEPSY
     Route: 048
  4. ONFI [Suspect]
     Active Substance: CLOBAZAM
     Indication: FOCAL DYSCOGNITIVE SEIZURES
     Route: 048
  5. ONFI [Suspect]
     Active Substance: CLOBAZAM
     Route: 048
  6. ONFI [Suspect]
     Active Substance: CLOBAZAM
     Indication: EPILEPSY
     Route: 048

REACTIONS (2)
  - Peripheral swelling [Unknown]
  - Seizure [Unknown]
